FAERS Safety Report 15344294 (Version 1)
Quarter: 2018Q3

REPORT INFORMATION
  Report Type: Spontaneous
  Country: FR (occurrence: FR)
  Receive Date: 20180903
  Receipt Date: 20180903
  Transmission Date: 20181010
  Serious: Yes (Death)
  Sender: FDA-Public Use
  Company Number: FR-ALLERGAN-1842087US

PATIENT
  Age: 69 Year
  Sex: Male
  Weight: 79 kg

DRUGS (12)
  1. PERINDOPRIL [Suspect]
     Active Substance: PERINDOPRIL
     Indication: HYPERTENSION
     Dosage: 2 MG, QD
     Route: 048
     Dates: end: 20180110
  2. ALLOPURINOL. [Suspect]
     Active Substance: ALLOPURINOL
     Indication: PRODUCT USED FOR UNKNOWN INDICATION
     Dosage: 300 MG, QD
     Route: 048
     Dates: end: 20180110
  3. DIAMICRON [Suspect]
     Active Substance: GLICLAZIDE
     Indication: TYPE 1 DIABETES MELLITUS
     Dosage: 120 MG, QD
     Route: 048
     Dates: end: 20180110
  4. DUOPLAVIN [Suspect]
     Active Substance: ASPIRIN\CLOPIDOGREL
     Indication: THROMBOSIS PROPHYLAXIS
     Dosage: UNK UNK, QD
     Route: 048
     Dates: end: 20180110
  5. JANUMET [Suspect]
     Active Substance: METFORMIN HYDROCHLORIDE\SITAGLIPTIN PHOSPHATE
     Indication: TYPE 1 DIABETES MELLITUS
     Dosage: 100MG/2000 MG, QD
     Route: 048
     Dates: end: 20180110
  6. PROCORALAN [Suspect]
     Active Substance: IVABRADINE
     Indication: PRODUCT USED FOR UNKNOWN INDICATION
     Dosage: 10 MG, QD
     Route: 048
     Dates: end: 20180110
  7. VITAMIN B6 [Suspect]
     Active Substance: PYRIDOXINE HYDROCHLORIDE
     Indication: PRODUCT USED FOR UNKNOWN INDICATION
     Dosage: 500 MG, UNK
     Route: 048
  8. INDAPAMIDE. [Suspect]
     Active Substance: INDAPAMIDE
     Indication: HYPERTENSION
     Dosage: .63 MG, QD
     Route: 048
     Dates: end: 20180110
  9. LANTUS [Suspect]
     Active Substance: INSULIN GLARGINE
     Indication: TYPE 1 DIABETES MELLITUS
     Dosage: UNK
     Route: 058
     Dates: end: 20180110
  10. LEVOTHYROX [Suspect]
     Active Substance: LEVOTHYROXINE
     Indication: THYROID DISORDER
     Dosage: 100 ?G, QD
     Route: 048
     Dates: end: 20180110
  11. SERESTA [Suspect]
     Active Substance: OXAZEPAM
     Indication: ANXIETY
     Dosage: 10 MG, QD
     Route: 048
     Dates: end: 20180110
  12. NEBIVOLOL HCL ? BP [Suspect]
     Active Substance: NEBIVOLOL
     Indication: HYPERTENSION
     Dosage: 5 MG, QD
     Route: 048
     Dates: end: 20180110

REACTIONS (4)
  - Hyperkalaemia [Fatal]
  - Anaemia [Fatal]
  - Acute kidney injury [Fatal]
  - Lactic acidosis [Fatal]

NARRATIVE: CASE EVENT DATE: 20180110
